FAERS Safety Report 14710896 (Version 1)
Quarter: 2018Q2

REPORT INFORMATION
  Report Type: Spontaneous
  Country: US (occurrence: US)
  Receive Date: 20180403
  Receipt Date: 20180403
  Transmission Date: 20180711
  Serious: No
  Sender: FDA-Public Use
  Company Number: US-BAUSCH-BL-2017-005923

PATIENT
  Sex: Female

DRUGS (2)
  1. RENOVA [Suspect]
     Active Substance: TRETINOIN
     Indication: SKIN TEXTURE ABNORMAL
     Route: 061
     Dates: start: 20170221, end: 20170223
  2. RENOVA [Suspect]
     Active Substance: TRETINOIN
     Indication: SKIN WRINKLING

REACTIONS (1)
  - Hypersensitivity [Recovered/Resolved]

NARRATIVE: CASE EVENT DATE: 20170222
